FAERS Safety Report 9761266 (Version 3)
Quarter: 2014Q1

REPORT INFORMATION
  Report Type: Spontaneous
  Country: US (occurrence: US)
  Receive Date: 20131216
  Receipt Date: 20140107
  Transmission Date: 20141002
  Serious: Yes (Other)
  Sender: FDA-Public Use
  Company Number: ALCN2013US006122

PATIENT
  Age: 47 Year
  Sex: Female
  Weight: 99.77 kg

DRUGS (7)
  1. SYSTANE ULTRA HIGH PERFORMANCE [Suspect]
     Indication: RETINITIS HISTOPLASMA
     Dosage: UNK
     Route: 047
     Dates: start: 20131018, end: 20131125
  2. SYSTANE LIQUID GEL DROPS [Suspect]
     Indication: RETINITIS HISTOPLASMA
     Dosage: 2 GTT, Q4H
     Route: 047
     Dates: start: 20131018, end: 20131125
  3. SYSTANE [Suspect]
     Indication: RETINITIS HISTOPLASMA
     Dosage: UNK
     Route: 047
     Dates: start: 20131018, end: 20131125
  4. SYSTANE OVERNIGHT THERAPY [Suspect]
     Indication: RETINITIS HISTOPLASMA
     Dosage: UNK
     Route: 047
     Dates: start: 20131018, end: 20131125
  5. SYSTANE LID WIPES [Suspect]
     Indication: RETINITIS HISTOPLASMA
     Dosage: UNK
     Route: 047
     Dates: start: 20131018, end: 20131125
  6. SYSTANE NIGHTTIME [Suspect]
     Indication: RETINITIS HISTOPLASMA
     Dosage: UNK
     Route: 047
     Dates: start: 20131018, end: 20131125
  7. RESTASIS [Concomitant]
     Dosage: UNK
     Route: 047

REACTIONS (7)
  - Vision blurred [Not Recovered/Not Resolved]
  - Metamorphopsia [Not Recovered/Not Resolved]
  - Foreign body sensation in eyes [Not Recovered/Not Resolved]
  - Lacrimation increased [Not Recovered/Not Resolved]
  - Visual impairment [Not Recovered/Not Resolved]
  - Ocular hyperaemia [Not Recovered/Not Resolved]
  - Eye inflammation [Not Recovered/Not Resolved]
